APPROVED DRUG PRODUCT: TRAZODONE HYDROCHLORIDE
Active Ingredient: TRAZODONE HYDROCHLORIDE
Strength: 50MG
Dosage Form/Route: TABLET;ORAL
Application: A072484 | Product #001
Applicant: RISING PHARMA HOLDINGS INC
Approved: Apr 30, 1990 | RLD: No | RS: No | Type: DISCN